FAERS Safety Report 14940106 (Version 1)
Quarter: 2018Q2

REPORT INFORMATION
  Report Type: Spontaneous
  Country: DE (occurrence: DE)
  Receive Date: 20180525
  Receipt Date: 20180525
  Transmission Date: 20180711
  Serious: Yes (Life-Threatening, Hospitalization)
  Sender: FDA-Public Use
  Company Number: DE-ELI_LILLY_AND_COMPANY-DE201805011821

PATIENT
  Age: 66 Year
  Sex: Male
  Weight: 144 kg

DRUGS (4)
  1. ERBITUX [Suspect]
     Active Substance: CETUXIMAB
     Indication: OESOPHAGEAL SQUAMOUS CELL CARCINOMA RECURRENT
     Dosage: 800 MG, UNKNOWN
     Dates: start: 20180320
  2. RANITIC [Concomitant]
     Active Substance: RANITIDINE HYDROCHLORIDE
     Indication: PREMEDICATION
     Dosage: 1 DF, UNKNOWN
     Route: 042
  3. PREDNISOLUT                        /00016203/ [Concomitant]
     Indication: PREMEDICATION
     Dosage: 100 MG, UNKNOWN
     Route: 042
  4. TAVEGIL                            /00137201/ [Concomitant]
     Active Substance: CLEMASTINE FUMARATE
     Indication: PREMEDICATION
     Dosage: 1 DF, UNKNOWN
     Route: 042

REACTIONS (6)
  - Respiratory arrest [Not Recovered/Not Resolved]
  - Hepatic enzyme increased [Not Recovered/Not Resolved]
  - Anaphylactic shock [Not Recovered/Not Resolved]
  - Acute kidney injury [Not Recovered/Not Resolved]
  - Respiratory failure [Not Recovered/Not Resolved]
  - Cardiac arrest [Not Recovered/Not Resolved]

NARRATIVE: CASE EVENT DATE: 20180320
